FAERS Safety Report 9603034 (Version 1)
Quarter: 2013Q4

REPORT INFORMATION
  Report Type: Report from Study
  Country: US (occurrence: US)
  Receive Date: 20131007
  Receipt Date: 20131007
  Transmission Date: 20140711
  Serious: Yes (Hospitalization, Other)
  Sender: FDA-Public Use
  Company Number: US-ABBVIE-13P-163-1153242-00

PATIENT
  Age: 55 Year
  Sex: Male

DRUGS (3)
  1. HUMIRA [Suspect]
     Indication: CROHN^S DISEASE
     Dosage: SUNDAY
     Dates: start: 201211
  2. CIPRO [Concomitant]
     Indication: GASTROINTESTINAL INFECTION
     Route: 048
  3. TRAMADOL [Concomitant]
     Indication: PAIN
     Route: 048

REACTIONS (7)
  - Fall [Unknown]
  - Laceration [Unknown]
  - Wound infection [Recovered/Resolved]
  - White blood cell count increased [Recovered/Resolved]
  - Anal dilation procedure [Recovering/Resolving]
  - Diarrhoea [Recovering/Resolving]
  - Fatigue [Unknown]
